FAERS Safety Report 8097478-1 (Version None)
Quarter: 2012Q1

REPORT INFORMATION
  Report Type: 
  Country: None (occurrence: None)
  Receive Date: 20120128
  Receipt Date: 20110707
  Transmission Date: 20120608
  Serious: No
  Sender: FDA-Public Use
  Company Number: US-ABBOTT-11P-163-0836997-00

PATIENT
  Age: 15 Year
  Sex: Female

DRUGS (1)
  1. HUMIRA [Suspect]
     Indication: JUVENILE ARTHRITIS
     Dates: start: 20110301

REACTIONS (5)
  - FATIGUE [None]
  - DIARRHOEA [None]
  - ACTIVITIES OF DAILY LIVING IMPAIRED [None]
  - AMYLASE INCREASED [None]
  - NAUSEA [None]
